FAERS Safety Report 19406214 (Version 1)
Quarter: 2021Q2

REPORT INFORMATION
  Report Type: Spontaneous
  Country: DE (occurrence: DE)
  Receive Date: 20210611
  Receipt Date: 20210611
  Transmission Date: 20210717
  Serious: Yes (Hospitalization)
  Sender: FDA-Public Use
  Company Number: DE-TEVA-2021-DE-1919939

PATIENT
  Age: 83 Year
  Sex: Female

DRUGS (13)
  1. AMITRIPTYLIN [Concomitant]
     Active Substance: AMITRIPTYLINE
     Dosage: 2 DOSAGE FORMS DAILY; 25 MG, 0?0?2?0
     Route: 048
  2. SIMVASTATIN. [Concomitant]
     Active Substance: SIMVASTATIN
     Dosage: 20 MILLIGRAM DAILY;  0?0?1?0
     Route: 048
  3. BENSERAZID/LEVODOPA [Concomitant]
     Active Substance: BENSERAZIDE\LEVODOPA
     Dosage: 1.5 DOSAGE FORMS DAILY; 25|100 MG, 0.5?0.5?0.5?0
     Route: 048
  4. CARBIMAZOL [Concomitant]
     Active Substance: CARBIMAZOLE
     Dosage: 3 DOSAGE FORMS DAILY; 10 MG, 3?0?0?0
     Route: 048
  5. FOLSAURE [Concomitant]
     Active Substance: FOLIC ACID
     Dosage: 5 MILLIGRAM DAILY; 1?0?0?0
     Route: 048
  6. OLANZAPIN [Concomitant]
     Active Substance: OLANZAPINE
     Dosage: 150 MILLIGRAM DAILY;  0?0?0?1
     Route: 048
  7. SPIRIVA [Concomitant]
     Active Substance: TIOTROPIUM BROMIDE MONOHYDRATE
     Dosage: 1 DOSAGE FORMS DAILY; 1?0?0?0, METERED DOSE AEROSOL
     Route: 055
  8. PANTOPRAZOL [Concomitant]
     Active Substance: PANTOPRAZOLE SODIUM
     Dosage: 40 MILLIGRAM DAILY; 1?0?0?0
     Route: 048
  9. DABIGATRAN [Suspect]
     Active Substance: DABIGATRAN
     Dosage: 300 MILLIGRAM DAILY; 1?0?1?0
     Route: 048
  10. REKAWAN [Concomitant]
     Active Substance: POTASSIUM CHLORIDE
     Dosage: 26.84 MICROGRAM DAILY; 1?0?1?0
     Route: 048
  11. EISENSULFAT LOMAPHARM 100 MG [Concomitant]
     Dosage: 100 MILLIGRAM DAILY; 1?0?0?0
     Route: 048
  12. TORASEMID [Suspect]
     Active Substance: TORSEMIDE
     Dosage: 5 MILLIGRAM DAILY; 1?0?0?0
     Route: 048
  13. BISOPROLOL [Concomitant]
     Active Substance: BISOPROLOL
     Dosage: 5 MILLIGRAM DAILY;  1?0?1?0
     Route: 048

REACTIONS (1)
  - Haematochezia [Unknown]

NARRATIVE: CASE EVENT DATE: 20210308
